FAERS Safety Report 15325495 (Version 1)
Quarter: 2018Q3

REPORT INFORMATION
  Report Type: Spontaneous
  Country: US (occurrence: US)
  Receive Date: 20180828
  Receipt Date: 20180828
  Transmission Date: 20181010
  Serious: Yes (Other)
  Sender: FDA-Public Use
  Company Number: US-BRISTOL-MYERS SQUIBB COMPANY-BMS-2018-079656

PATIENT
  Age: 60 Year
  Sex: Female

DRUGS (3)
  1. METOPROLOL                         /00376902/ [Concomitant]
     Active Substance: METOPROLOL TARTRATE
     Indication: PRODUCT USED FOR UNKNOWN INDICATION
     Dosage: 50 MG, UNK
     Route: 065
  2. ELIQUIS [Suspect]
     Active Substance: APIXABAN
     Indication: CEREBROVASCULAR ACCIDENT PROPHYLAXIS
     Dosage: UNK UNK, BID
     Route: 048
     Dates: start: 2016
  3. PRAVASTATIN. [Concomitant]
     Active Substance: PRAVASTATIN
     Indication: PRODUCT USED FOR UNKNOWN INDICATION
     Dosage: 10 MG, QD (ONCE IN EVENING)
     Route: 065

REACTIONS (6)
  - Hepatic steatosis [Unknown]
  - Dizziness [Unknown]
  - Weight increased [Unknown]
  - Haematochezia [Unknown]
  - Haemorrhoids [Unknown]
  - Diarrhoea [Unknown]

NARRATIVE: CASE EVENT DATE: 201711
